FAERS Safety Report 15868385 (Version 1)
Quarter: 2019Q1

REPORT INFORMATION
  Report Type: Spontaneous
  Country: US (occurrence: US)
  Receive Date: 20190125
  Receipt Date: 20190125
  Transmission Date: 20190417
  Serious: No
  Sender: FDA-Public Use
  Company Number: US-BAYER-2019-014043

PATIENT
  Sex: Male

DRUGS (2)
  1. STIVARGA [Suspect]
     Active Substance: REGORAFENIB
     Dosage: UNKNOWN
  2. STIVARGA [Suspect]
     Active Substance: REGORAFENIB
     Dosage: UNKNOWN

REACTIONS (2)
  - Pain [None]
  - Pain [Not Recovered/Not Resolved]
